FAERS Safety Report 8936510 (Version 2)
Quarter: 2013Q2

REPORT INFORMATION
  Report Type: Spontaneous
  Country: JP (occurrence: JP)
  Receive Date: 20121130
  Receipt Date: 20130530
  Transmission Date: 20140414
  Serious: Yes (Death, Hospitalization)
  Sender: FDA-Public Use
  Company Number: JP-NOVOPROD-364695

PATIENT
  Age: 80 Year
  Sex: Male
  Weight: 44 kg

DRUGS (8)
  1. VICTOZA HIKACHU INJECTION [Suspect]
     Indication: TYPE 2 DIABETES MELLITUS
     Dosage: 0.3 MG, QD
     Route: 058
     Dates: start: 20110210
  2. VICTOZA HIKACHU INJECTION [Suspect]
     Dosage: 0.6 MG, QD
     Route: 058
     Dates: start: 20110310
  3. VICTOZA HIKACHU INJECTION [Suspect]
     Dosage: 0.9 MG, QD
     Route: 058
     Dates: end: 20110414
  4. AMARYL [Concomitant]
     Indication: TYPE 2 DIABETES MELLITUS
     Dosage: 1 MG, QD
     Dates: start: 20090820, end: 20110509
  5. MUCOSTA [Concomitant]
     Indication: GASTRIC CANCER
     Dosage: 300 MG, QD
  6. GASMOTIN [Concomitant]
     Indication: GASTRIC CANCER
     Dosage: 15 MG, QD
  7. HERBAL EXTRACT NOS [Concomitant]
     Indication: GASTRIC CANCER
  8. PARIET [Concomitant]
     Indication: GASTRIC CANCER
     Dosage: 10 MG, QD

REACTIONS (2)
  - Pancreatic carcinoma [Fatal]
  - Diabetes mellitus inadequate control [Unknown]
